FAERS Safety Report 25534081 (Version 1)
Quarter: 2025Q3

REPORT INFORMATION
  Report Type: Spontaneous
  Country: US (occurrence: US)
  Receive Date: 20250709
  Receipt Date: 20250709
  Transmission Date: 20251020
  Serious: Yes (Other)
  Sender: RANBAXY
  Company Number: US-SUN PHARMACEUTICAL INDUSTRIES INC-2025R1-516359

PATIENT
  Age: 4 Year
  Sex: Female

DRUGS (1)
  1. CAFFEINE [Suspect]
     Active Substance: CAFFEINE
     Indication: Product used for unknown indication
     Route: 065

REACTIONS (6)
  - Overdose [Unknown]
  - Seizure [Unknown]
  - Drug level above therapeutic [Unknown]
  - Tachycardia [Unknown]
  - Rhabdomyolysis [Unknown]
  - Hypokalaemia [Unknown]
